FAERS Safety Report 9734837 (Version 2)
Quarter: 2013Q4

REPORT INFORMATION
  Report Type: Spontaneous
  Country: DK (occurrence: DK)
  Receive Date: 20131206
  Receipt Date: 20131206
  Transmission Date: 20140711
  Serious: Yes (Other)
  Sender: FDA-Public Use
  Company Number: DK-MERCK-1312DNK002926

PATIENT
  Age: 43 Year
  Sex: Male
  Weight: 91 kg

DRUGS (3)
  1. NASONEX [Suspect]
     Indication: RHINITIS ALLERGIC
     Dosage: DOSE: 2 SPRAYS IN EACH NOSTRIL, TWICE DAILY, STRENGTH: 50 MICROGRAMS/DOSE
     Route: 045
     Dates: start: 2011, end: 201309
  2. PANODIL [Concomitant]
     Indication: HEADACHE
     Dosage: DOSE: 2 TABLETS 3 TIMES DAILY
     Route: 048
     Dates: start: 2009
  3. CODEINE PHOSPHATE [Concomitant]
     Indication: HEADACHE
     Dosage: UNK
     Dates: start: 2000

REACTIONS (1)
  - Chorioretinopathy [Not Recovered/Not Resolved]
